FAERS Safety Report 24697202 (Version 1)
Quarter: 2024Q4

REPORT INFORMATION
  Report Type: Spontaneous
  Country: US (occurrence: US)
  Receive Date: 20241204
  Receipt Date: 20241204
  Transmission Date: 20250114
  Serious: Yes (Life-Threatening)
  Sender: SAMSUNG BIOEPIS
  Company Number: US-SAMSUNG BIOEPIS-SB-2023-29114

PATIENT
  Sex: Female

DRUGS (6)
  1. ONTRUZANT [Suspect]
     Active Substance: TRASTUZUMAB-DTTB
     Indication: Breast cancer
     Route: 042
     Dates: start: 20231004, end: 20231012
  2. ONTRUZANT [Suspect]
     Active Substance: TRASTUZUMAB-DTTB
     Dosage: UNKNOWN
     Route: 065
  3. CARBOPLATIN [Suspect]
     Active Substance: CARBOPLATIN
     Indication: Breast cancer
     Dosage: UNKNOWN. 5 CYCLES;
     Route: 065
  4. DOCETAXEL [Suspect]
     Active Substance: DOCETAXEL
  5. PERTUZUMAB [Suspect]
     Active Substance: PERTUZUMAB
  6. TRASTUZUMAB [Suspect]
     Active Substance: TRASTUZUMAB

REACTIONS (1)
  - Infusion related hypersensitivity reaction [Recovered/Resolved]

NARRATIVE: CASE EVENT DATE: 20231004
